FAERS Safety Report 6501224-X (Version None)
Quarter: 2009Q4

REPORT INFORMATION
  Report Type: 
  Country: None (occurrence: None)
  Receive Date: 20091216
  Receipt Date: 20091005
  Transmission Date: 20100525
  Serious: No
  Sender: FDA-Public Use
  Company Number: A0810981A

PATIENT
  Sex: Female

DRUGS (2)
  1. COMMIT [Suspect]
     Route: 002
  2. NICOTINE [Suspect]
     Indication: DRUG USE FOR UNKNOWN INDICATION
     Route: 062

REACTIONS (1)
  - HYPERHIDROSIS [None]
